FAERS Safety Report 8594795-3 (Version None)
Quarter: 2012Q3

REPORT INFORMATION
  Report Type: 
  Country: None (occurrence: None)
  Receive Date: 20120815
  Receipt Date: 20120731
  Transmission Date: 20120928
  Serious: Yes (Other)
  Sender: FDA-Public Use
  Company Number: US-SANOFI-AVENTIS-2012SA050990

PATIENT
  Age: 84 Year
  Sex: Male
  Weight: 82 kg

DRUGS (4)
  1. TRANXENE [Concomitant]
     Dates: start: 19800101
  2. PLAVIX [Suspect]
     Route: 048
     Dates: start: 20111220
  3. SYNTHROID [Concomitant]
     Dates: start: 19600101
  4. PRILOSEC [Suspect]
     Route: 065

REACTIONS (6)
  - GASTRIC DISORDER [None]
  - GASTROOESOPHAGEAL REFLUX DISEASE [None]
  - WRONG TECHNIQUE IN DRUG USAGE PROCESS [None]
  - DIZZINESS [None]
  - CHOKING [None]
  - RASH MACULAR [None]
